FAERS Safety Report 8971993 (Version 1)
Quarter: 2012Q4

REPORT INFORMATION
  Report Type: 
  Country: CH (occurrence: CH)
  Receive Date: 20121218
  Receipt Date: 20121218
  Transmission Date: 20130627
  Serious: Yes (Other)
  Sender: FDA-Public Use
  Company Number: PHHY2012CH115913

PATIENT
  Sex: Female

DRUGS (6)
  1. NORFLOXACIN [Suspect]
     Indication: URINARY TRACT INFECTION
     Dosage: 400 mg, BID
     Route: 048
     Dates: start: 201204, end: 201204
  2. FLUCONAZOLE [Suspect]
     Dosage: 200 mg, single dose
     Route: 048
     Dates: start: 201203, end: 201203
  3. RIVOTRIL [Suspect]
     Dosage: UNK
     Route: 048
     Dates: start: 2012
  4. CYPROTERONE [Suspect]
     Dosage: UNK
     Route: 048
     Dates: start: 201204
  5. UNSPECIFIED INGREDIENT [Suspect]
     Dosage: UNK
     Route: 048
     Dates: start: 201201
  6. REGAINE [Suspect]
     Indication: ANDROGENETIC ALOPECIA
     Dosage: UNK
     Dates: start: 201201

REACTIONS (2)
  - Premature labour [Recovered/Resolved]
  - Maternal exposure during pregnancy [Recovered/Resolved]
